FAERS Safety Report 20144059 (Version 14)
Quarter: 2022Q2

REPORT INFORMATION
  Report Type: Report from Study
  Country: CN (occurrence: None)
  Receive Date: 20211203
  Receipt Date: 20220507
  Transmission Date: 20220721
  Serious: Yes (Hospitalization)
  Sender: FDA-Public Use
  Company Number: CN-ROCHE-2969796

PATIENT
  Age: 66 Year
  Sex: Female
  Weight: 57 kg

DRUGS (96)
  1. TIRAGOLUMAB [Suspect]
     Active Substance: TIRAGOLUMAB
     Indication: Oesophageal squamous cell carcinoma metastatic
     Dosage: START DATE OF MOST RECENT DOSE OF STUDY DRUG PRIOR TO SAE 17/NOV/2021
     Route: 042
     Dates: start: 20210730
  2. ATEZOLIZUMAB [Suspect]
     Active Substance: ATEZOLIZUMAB
     Indication: Oesophageal squamous cell carcinoma metastatic
     Dosage: MOST RECENT DOSE OF STUDY DRUG PRIOR TO AE: 17/NOV/2021?START DATE OF MOST RECENT DOSE OF STUDY DRUG
     Route: 042
     Dates: start: 20210730
  3. PACLITAXEL [Suspect]
     Active Substance: PACLITAXEL
     Indication: Oesophageal squamous cell carcinoma metastatic
     Dosage: ON 17/NOV/2021, SHE RECEIVED MOST RECENT DOSE (270 MG) OF INTRAVENOUS PACLITAXEL INFUSION PRIOR TO A
     Route: 042
     Dates: start: 20210730
  4. CISPLATIN [Suspect]
     Active Substance: CISPLATIN
     Indication: Oesophageal squamous cell carcinoma metastatic
     Dosage: ON 17/NOV/2021, SHE RECEIVED MOST RECENT DOSE (110 MG) OF INTRAVENOUS CARBOPLATIN INFUSION PRIOR TO
     Route: 042
     Dates: start: 20210730
  5. METHYLCOBALAMIN [Concomitant]
     Active Substance: METHYLCOBALAMIN
     Route: 048
     Dates: start: 20211029, end: 20211114
  6. METHYLCOBALAMIN [Concomitant]
     Active Substance: METHYLCOBALAMIN
     Dates: start: 20211120, end: 20211128
  7. METHYLCOBALAMIN [Concomitant]
     Active Substance: METHYLCOBALAMIN
     Dates: start: 20211205, end: 20211207
  8. NIAO DU QING [Concomitant]
     Dates: start: 20211029, end: 20211114
  9. NIAO DU QING [Concomitant]
     Dates: start: 20211205, end: 20211207
  10. NIAO DU QING [Concomitant]
     Dates: start: 20211210, end: 20220213
  11. LANSOPRAZOLE [Concomitant]
     Active Substance: LANSOPRAZOLE
     Dates: start: 20211117, end: 20211118
  12. LANSOPRAZOLE [Concomitant]
     Active Substance: LANSOPRAZOLE
     Route: 042
     Dates: start: 20210930, end: 20211001
  13. LANSOPRAZOLE [Concomitant]
     Active Substance: LANSOPRAZOLE
     Route: 042
     Dates: start: 20211025, end: 20211026
  14. GRANISETRON HYDROCHLORIDE [Concomitant]
     Active Substance: GRANISETRON HYDROCHLORIDE
     Dates: start: 20211117, end: 20211118
  15. DEXTROSE\SODIUM CHLORIDE [Concomitant]
     Active Substance: DEXTROSE\SODIUM CHLORIDE
     Dates: start: 20211116, end: 20211118
  16. DEXTROSE\SODIUM CHLORIDE [Concomitant]
     Active Substance: DEXTROSE\SODIUM CHLORIDE
     Route: 042
     Dates: start: 20210819, end: 20210821
  17. DEXTROSE\SODIUM CHLORIDE [Concomitant]
     Active Substance: DEXTROSE\SODIUM CHLORIDE
     Route: 042
     Dates: start: 20210908, end: 20210910
  18. DEXTROSE\SODIUM CHLORIDE [Concomitant]
     Active Substance: DEXTROSE\SODIUM CHLORIDE
     Route: 042
     Dates: start: 20210929, end: 20211001
  19. DEXTROSE\SODIUM CHLORIDE [Concomitant]
     Active Substance: DEXTROSE\SODIUM CHLORIDE
     Route: 042
     Dates: start: 20211024, end: 20211026
  20. POTASSIUM CHLORIDE [Concomitant]
     Active Substance: POTASSIUM CHLORIDE
     Dates: start: 20211116, end: 20211118
  21. POTASSIUM CHLORIDE [Concomitant]
     Active Substance: POTASSIUM CHLORIDE
     Dosage: ONGOING NO
     Route: 042
     Dates: start: 20220214, end: 20220222
  22. POTASSIUM CHLORIDE [Concomitant]
     Active Substance: POTASSIUM CHLORIDE
     Dosage: ONGOING NO
     Route: 042
     Dates: start: 20211129, end: 20211129
  23. POTASSIUM CHLORIDE [Concomitant]
     Active Substance: POTASSIUM CHLORIDE
     Dosage: ONGOING NO
     Route: 042
     Dates: start: 20211130, end: 20211201
  24. POTASSIUM CHLORIDE [Concomitant]
     Active Substance: POTASSIUM CHLORIDE
     Dosage: ONGOING NO
     Route: 042
     Dates: start: 20211203, end: 20211204
  25. POTASSIUM CHLORIDE [Concomitant]
     Active Substance: POTASSIUM CHLORIDE
     Dosage: ONGOING NO
     Route: 042
     Dates: start: 20211204, end: 20211204
  26. POTASSIUM CHLORIDE [Concomitant]
     Active Substance: POTASSIUM CHLORIDE
     Dosage: ONGOING NO
     Route: 048
     Dates: start: 20211204, end: 20211204
  27. POTASSIUM CHLORIDE [Concomitant]
     Active Substance: POTASSIUM CHLORIDE
     Dosage: 1 GRAIN
     Route: 048
     Dates: start: 20220222, end: 202203
  28. POTASSIUM CHLORIDE [Concomitant]
     Active Substance: POTASSIUM CHLORIDE
     Route: 042
     Dates: start: 20210819, end: 20210821
  29. POTASSIUM CHLORIDE [Concomitant]
     Active Substance: POTASSIUM CHLORIDE
     Route: 042
     Dates: start: 20210908, end: 20210910
  30. POTASSIUM CHLORIDE [Concomitant]
     Active Substance: POTASSIUM CHLORIDE
     Route: 042
     Dates: start: 20210929, end: 20211001
  31. POTASSIUM CHLORIDE [Concomitant]
     Active Substance: POTASSIUM CHLORIDE
     Route: 042
     Dates: start: 20211024, end: 20211026
  32. SODIUM CHLORIDE [Concomitant]
     Active Substance: SODIUM CHLORIDE
     Dates: start: 20211116, end: 20211116
  33. SODIUM CHLORIDE [Concomitant]
     Active Substance: SODIUM CHLORIDE
     Dates: start: 20211118, end: 20211118
  34. SODIUM CHLORIDE [Concomitant]
     Active Substance: SODIUM CHLORIDE
     Route: 042
     Dates: start: 20210819, end: 20210819
  35. SODIUM CHLORIDE [Concomitant]
     Active Substance: SODIUM CHLORIDE
     Route: 042
     Dates: start: 20210821, end: 20210821
  36. SODIUM CHLORIDE [Concomitant]
     Active Substance: SODIUM CHLORIDE
     Route: 042
     Dates: start: 20210908, end: 20210908
  37. SODIUM CHLORIDE [Concomitant]
     Active Substance: SODIUM CHLORIDE
     Route: 042
     Dates: start: 20210910, end: 20210910
  38. SODIUM CHLORIDE [Concomitant]
     Active Substance: SODIUM CHLORIDE
     Route: 042
     Dates: start: 20210909, end: 20210909
  39. SODIUM CHLORIDE [Concomitant]
     Active Substance: SODIUM CHLORIDE
     Route: 042
     Dates: start: 20210910, end: 20210910
  40. SODIUM CHLORIDE [Concomitant]
     Active Substance: SODIUM CHLORIDE
     Route: 042
     Dates: start: 20210929, end: 20210929
  41. SODIUM CHLORIDE [Concomitant]
     Active Substance: SODIUM CHLORIDE
     Route: 042
     Dates: start: 20211001, end: 20211001
  42. SODIUM CHLORIDE [Concomitant]
     Active Substance: SODIUM CHLORIDE
     Route: 042
     Dates: start: 20211024, end: 20211024
  43. SODIUM CHLORIDE [Concomitant]
     Active Substance: SODIUM CHLORIDE
     Route: 042
     Dates: start: 20211026, end: 20211026
  44. DEXAMETHASONE SODIUM PHOSPHATE [Concomitant]
     Active Substance: DEXAMETHASONE SODIUM PHOSPHATE
     Route: 042
     Dates: start: 20211117, end: 20211117
  45. DEXAMETHASONE SODIUM PHOSPHATE [Concomitant]
     Active Substance: DEXAMETHASONE SODIUM PHOSPHATE
     Route: 042
     Dates: start: 20210820, end: 20210820
  46. DEXAMETHASONE SODIUM PHOSPHATE [Concomitant]
     Active Substance: DEXAMETHASONE SODIUM PHOSPHATE
     Route: 042
     Dates: start: 20210909, end: 20210909
  47. DEXAMETHASONE SODIUM PHOSPHATE [Concomitant]
     Active Substance: DEXAMETHASONE SODIUM PHOSPHATE
     Route: 042
     Dates: start: 20210930, end: 20210930
  48. DEXAMETHASONE SODIUM PHOSPHATE [Concomitant]
     Active Substance: DEXAMETHASONE SODIUM PHOSPHATE
     Route: 042
     Dates: start: 20211001, end: 20211001
  49. DEXAMETHASONE SODIUM PHOSPHATE [Concomitant]
     Active Substance: DEXAMETHASONE SODIUM PHOSPHATE
     Route: 042
     Dates: start: 20211025, end: 20211025
  50. PROMETHAZINE HYDROCHLORIDE [Concomitant]
     Active Substance: PROMETHAZINE HYDROCHLORIDE
     Dates: start: 20211117, end: 20211117
  51. PROMETHAZINE HYDROCHLORIDE [Concomitant]
     Active Substance: PROMETHAZINE HYDROCHLORIDE
     Route: 030
     Dates: start: 20210820, end: 20210820
  52. PROMETHAZINE HYDROCHLORIDE [Concomitant]
     Active Substance: PROMETHAZINE HYDROCHLORIDE
     Route: 030
     Dates: start: 20210909, end: 20210909
  53. PROMETHAZINE HYDROCHLORIDE [Concomitant]
     Active Substance: PROMETHAZINE HYDROCHLORIDE
     Route: 030
     Dates: start: 20210930, end: 20210930
  54. PROMETHAZINE HYDROCHLORIDE [Concomitant]
     Active Substance: PROMETHAZINE HYDROCHLORIDE
     Route: 042
     Dates: start: 20211025, end: 20211025
  55. CIMETIDINE [Concomitant]
     Active Substance: CIMETIDINE
     Dates: start: 20211117, end: 20211117
  56. CIMETIDINE [Concomitant]
     Active Substance: CIMETIDINE
     Route: 048
     Dates: start: 20210820, end: 20210820
  57. CIMETIDINE [Concomitant]
     Active Substance: CIMETIDINE
     Route: 048
     Dates: start: 20210909, end: 20210909
  58. CIMETIDINE [Concomitant]
     Active Substance: CIMETIDINE
     Route: 048
     Dates: start: 20210930, end: 20210930
  59. CIMETIDINE [Concomitant]
     Active Substance: CIMETIDINE
     Route: 048
     Dates: start: 20211025, end: 20211025
  60. FUROSEMIDE [Concomitant]
     Active Substance: FUROSEMIDE
     Dates: start: 20211117, end: 20211117
  61. FUROSEMIDE [Concomitant]
     Active Substance: FUROSEMIDE
     Route: 042
     Dates: start: 20210820, end: 20210820
  62. FUROSEMIDE [Concomitant]
     Active Substance: FUROSEMIDE
     Route: 042
     Dates: start: 20210909, end: 20210909
  63. FUROSEMIDE [Concomitant]
     Active Substance: FUROSEMIDE
     Route: 042
     Dates: start: 20210930, end: 20210930
  64. FUROSEMIDE [Concomitant]
     Active Substance: FUROSEMIDE
     Route: 042
     Dates: start: 20211025, end: 20211025
  65. METOCLOPRAMIDE HYDROCHLORIDE [Concomitant]
     Active Substance: METOCLOPRAMIDE HYDROCHLORIDE
     Indication: Vomiting
     Dates: start: 20211118, end: 20211118
  66. METOCLOPRAMIDE HYDROCHLORIDE [Concomitant]
     Active Substance: METOCLOPRAMIDE HYDROCHLORIDE
     Dates: start: 20211119, end: 20211120
  67. METOCLOPRAMIDE HYDROCHLORIDE [Concomitant]
     Active Substance: METOCLOPRAMIDE HYDROCHLORIDE
     Dosage: 2 TABLET
     Route: 048
     Dates: start: 20210801, end: 20210803
  68. METOCLOPRAMIDE HYDROCHLORIDE [Concomitant]
     Active Substance: METOCLOPRAMIDE HYDROCHLORIDE
     Route: 042
     Dates: start: 20210821, end: 20210821
  69. DEXAMETHASONE ACETATE [Concomitant]
     Active Substance: DEXAMETHASONE ACETATE
     Dates: start: 20211029, end: 20211114
  70. DEXAMETHASONE ACETATE [Concomitant]
     Active Substance: DEXAMETHASONE ACETATE
     Dates: start: 20211205, end: 20211207
  71. METHYLCOBALAMIN [Concomitant]
     Active Substance: METHYLCOBALAMIN
     Dates: start: 20211210, end: 20220213
  72. CALCIUM CARBONATE;VITAMIN D3 [Concomitant]
     Indication: Mineral supplementation
     Route: 048
     Dates: start: 20211210, end: 20220213
  73. RECOMBINANT HUMAN GRANULOCYTE COLONY STIMULATING FACTOR INJECTION (RHG [Concomitant]
     Route: 058
     Dates: start: 20211129, end: 20211129
  74. RECOMBINANT HUMAN GRANULOCYTE COLONY STIMULATING FACTOR INJECTION (RHG [Concomitant]
     Route: 058
     Dates: start: 20211204, end: 20211204
  75. RECOMBINANT HUMAN GRANULOCYTE COLONY STIMULATING FACTOR INJECTION (RHG [Concomitant]
     Route: 058
     Dates: start: 20210806, end: 20210806
  76. VITAMIN C [Concomitant]
     Active Substance: ASCORBIC ACID
     Route: 042
     Dates: start: 20211129, end: 20211129
  77. BRUCEA JAVANICA OIL [Concomitant]
     Dates: start: 20211129, end: 20211129
  78. BRUCEA JAVANICA OIL [Concomitant]
     Dates: start: 20211130, end: 20211130
  79. PHOSPHOLIPID [Concomitant]
     Active Substance: PHOSPHOLIPID
     Indication: Blood bilirubin increased
     Dosage: 2 CAPSULE
     Route: 048
     Dates: start: 20210807, end: 20210810
  80. PHOSPHOLIPID [Concomitant]
     Active Substance: PHOSPHOLIPID
     Dosage: 2 CAPSULE
     Route: 048
     Dates: start: 20210914, end: 20210919
  81. PHOSPHOLIPID [Concomitant]
     Active Substance: PHOSPHOLIPID
     Dosage: 2 CAPSULE
     Route: 048
     Dates: start: 20211004, end: 20211010
  82. PALONOSETRON HYDROCHLORIDE [Concomitant]
     Active Substance: PALONOSETRON HYDROCHLORIDE
     Route: 042
     Dates: start: 20210820, end: 20210820
  83. PALONOSETRON HYDROCHLORIDE [Concomitant]
     Active Substance: PALONOSETRON HYDROCHLORIDE
     Dosage: 1 CAPSULE
     Route: 048
     Dates: start: 20210821, end: 20210822
  84. PALONOSETRON HYDROCHLORIDE [Concomitant]
     Active Substance: PALONOSETRON HYDROCHLORIDE
     Route: 042
     Dates: start: 20210909, end: 20210909
  85. PALONOSETRON HYDROCHLORIDE [Concomitant]
     Active Substance: PALONOSETRON HYDROCHLORIDE
     Dosage: 1 CAPSULE
     Route: 048
     Dates: start: 20210911, end: 20210912
  86. PALONOSETRON HYDROCHLORIDE [Concomitant]
     Active Substance: PALONOSETRON HYDROCHLORIDE
     Route: 042
     Dates: start: 20210930, end: 20211001
  87. PALONOSETRON HYDROCHLORIDE [Concomitant]
     Active Substance: PALONOSETRON HYDROCHLORIDE
     Dosage: 1 CAPSULE
     Route: 048
     Dates: start: 20211002, end: 20211002
  88. PALONOSETRON HYDROCHLORIDE [Concomitant]
     Active Substance: PALONOSETRON HYDROCHLORIDE
     Route: 042
     Dates: start: 20211025, end: 20211026
  89. PALONOSETRON HYDROCHLORIDE [Concomitant]
     Active Substance: PALONOSETRON HYDROCHLORIDE
     Dosage: 1 CAPSULE
     Route: 048
     Dates: start: 20211027, end: 20211027
  90. METOCLOPRAMIDE DIHYDROCHLORIDE [Concomitant]
     Route: 042
     Dates: start: 20210910, end: 20210910
  91. METOCLOPRAMIDE DIHYDROCHLORIDE [Concomitant]
     Route: 042
     Dates: start: 20211001, end: 20211001
  92. METOCLOPRAMIDE DIHYDROCHLORIDE [Concomitant]
     Route: 042
     Dates: start: 20211026, end: 20211026
  93. METOCLOPRAMIDE DIHYDROCHLORIDE [Concomitant]
     Dates: start: 20211028, end: 20211028
  94. IBUPROFEN [Concomitant]
     Active Substance: IBUPROFEN
     Dates: start: 20211018, end: 20211018
  95. PACLITAXEL [Concomitant]
     Active Substance: PACLITAXEL
     Dates: start: 20220215, end: 20220215
  96. OXALIPLATIN [Concomitant]
     Active Substance: OXALIPLATIN
     Dates: start: 20220215, end: 20220215

REACTIONS (1)
  - Anaemia [Unknown]

NARRATIVE: CASE EVENT DATE: 20210901
